FAERS Safety Report 5924226-0 (Version None)
Quarter: 2008Q4

REPORT INFORMATION
  Report Type: 
  Country: None (occurrence: None)
  Receive Date: 20081015
  Receipt Date: 20081003
  Transmission Date: 20090506
  Serious: Yes (Hospitalization)
  Sender: FDA-Public Use
  Company Number: 6046208

PATIENT
  Age: 74 Year
  Sex: Female

DRUGS (10)
  1. CARDENSIEL 1.25 MG (TABLET) (BISOPROLOL FUMARATE) [Suspect]
     Indication: DRUG USE FOR UNKNOWN INDICATION
     Dosage: 1.25 MG (1.25 MG, 1 IN 1 D), ORAL
     Route: 048
     Dates: end: 20080818
  2. TERCIAN (TABLET) (CYAMEMAZINE) [Suspect]
     Indication: DRUG USE FOR UNKNOWN INDICATION
     Dosage: 25 MG (25 MG, 1 IN 1 D), ORAL
     Route: 048
     Dates: end: 20080818
  3. RISPERDAL [Suspect]
     Indication: DRUG USE FOR UNKNOWN INDICATION
     Dosage: 2 MG (2 MG, 1 IN 1 D), ORAL
     Route: 048
     Dates: end: 20080818
  4. STABLON (TABLET) (TIANEPTINE) [Suspect]
     Indication: DRUG USE FOR UNKNOWN INDICATION
     Dosage: 2 DOSAGE FORMS (1 DOSAGE FORMS, 2 IN 1 D), ORAL
     Route: 048
     Dates: end: 20080818
  5. TRIVASTAL LP(50 MG, TABLET) (PIRIBEDIL) [Suspect]
     Indication: DRUG USE FOR UNKNOWN INDICATION
     Dosage: 100 MG (50 MG, 2 IN 1 D), ORAL
     Route: 048
     Dates: end: 20080818
  6. PREVISCAN (TABLET) (FLUINDIONE) [Concomitant]
  7. MODOPAR (TABLET) (LEVODOPA, BENSERAZIDE HYDROCHLORIDE) [Concomitant]
  8. CORDARONE [Concomitant]
  9. AKINETON (TABLET) (BIPERIDEN HYDROCHLORIDE) [Concomitant]
  10. LAXILIX (TABLET) (FUROSEMIDE) [Concomitant]

REACTIONS (8)
  - DRUG INTERACTION [None]
  - DYSPNOEA EXERTIONAL [None]
  - FALL [None]
  - IATROGENIC INJURY [None]
  - MALAISE [None]
  - MULTIPLE SYSTEM ATROPHY [None]
  - ORTHOSTATIC HYPOTENSION [None]
  - VERTIGO [None]
